FAERS Safety Report 10201279 (Version 1)
Quarter: 2014Q2

REPORT INFORMATION
  Report Type: Spontaneous
  Country: DE (occurrence: DE)
  Receive Date: 20140528
  Receipt Date: 20140528
  Transmission Date: 20141212
  Serious: Yes (Other)
  Sender: FDA-Public Use
  Company Number: DE-ASTRAZENECA-2014SE35031

PATIENT
  Age: 23 Year
  Sex: Female

DRUGS (4)
  1. SEROQUEL PROLONG [Suspect]
     Route: 048
     Dates: start: 20131122, end: 20131126
  2. SEROQUEL PROLONG [Suspect]
     Route: 048
     Dates: start: 20131127, end: 20131217
  3. LAMOTRIGIN [Suspect]
     Route: 048
     Dates: start: 20131122, end: 20131128
  4. LAMOTRIGIN [Suspect]
     Route: 048
     Dates: start: 20131129, end: 20131203

REACTIONS (1)
  - Dermatitis allergic [Unknown]
